FAERS Safety Report 11857335 (Version 1)
Quarter: 2015Q4

REPORT INFORMATION
  Report Type: Spontaneous
  Country: CH (occurrence: CH)
  Receive Date: 20151221
  Receipt Date: 20151221
  Transmission Date: 20160305
  Serious: Yes (Hospitalization)
  Sender: FDA-Public Use
  Company Number: CH-TEVA-616929ISR

PATIENT
  Age: 66 Year
  Sex: Male

DRUGS (5)
  1. DILTIAZEM-MEPHA [Suspect]
     Active Substance: DILTIAZEM
     Indication: HYPERTENSION
     Dosage: 180 MILLIGRAM DAILY; 1 TABLET IN THE MORNING, 0 AT NOON, 1 IN THE EVENING.
     Route: 048
  2. TELMISARTAN-SANDOZ [Suspect]
     Active Substance: TELMISARTAN
     Dosage: 40 MILLIGRAM DAILY; 1 TABLET IN THE MORNING
     Route: 048
  3. STRUCTUM 500 [Suspect]
     Active Substance: CHONDROITIN SULFATE SODIUM (BOVINE)
     Indication: OSTEOARTHRITIS
     Dosage: 1000 MILLIGRAM DAILY; 1 TABLET IN THE MORNING, 0 AT NOON, 1 IN THE EVENING.
     Route: 048
     Dates: end: 20151113
  4. CRESTOR [Suspect]
     Active Substance: ROSUVASTATIN CALCIUM
     Indication: HYPERLIPIDAEMIA
     Dosage: 10 MILLIGRAM DAILY; 1 TAB IN THE EVENING.
     Route: 048
  5. ASPIRIN CARDIO 100 [Suspect]
     Active Substance: ASPIRIN
     Indication: CORONARY ARTERY DISEASE
     Dosage: 100 MILLIGRAM DAILY; 1 TABLET IN THE MORNING
     Route: 048

REACTIONS (3)
  - Thrombocytopenia [Unknown]
  - Normochromic normocytic anaemia [Unknown]
  - Bicytopenia [Unknown]

NARRATIVE: CASE EVENT DATE: 201511
